FAERS Safety Report 9283141 (Version 1)
Quarter: 2013Q2

REPORT INFORMATION
  Report Type: Spontaneous
  Country: US (occurrence: US)
  Receive Date: 20130510
  Receipt Date: 20130510
  Transmission Date: 20140414
  Serious: No
  Sender: FDA-Public Use
  Company Number: US-GLAXOSMITHKLINE-A0982889A

PATIENT
  Age: 78 Year
  Sex: Male

DRUGS (10)
  1. TYKERB [Suspect]
     Indication: BREAST CANCER
     Dosage: 1250MG PER DAY
     Route: 048
     Dates: start: 201205
  2. DYAZIDE [Concomitant]
  3. FLOMAX [Concomitant]
  4. ENALAPRIL [Concomitant]
  5. PIROXICAM [Concomitant]
  6. MECLIZINE [Concomitant]
  7. NEXIUM [Concomitant]
  8. POTASSIUM [Concomitant]
  9. MULTIVITAMIN [Concomitant]
  10. BABY ASPIRIN [Concomitant]

REACTIONS (6)
  - Fatigue [Not Recovered/Not Resolved]
  - Poor quality sleep [Not Recovered/Not Resolved]
  - Pruritus [Not Recovered/Not Resolved]
  - Cough [Not Recovered/Not Resolved]
  - Sleep disorder [Not Recovered/Not Resolved]
  - Drug ineffective [Unknown]
